FAERS Safety Report 6142117-X (Version None)
Quarter: 2009Q2

REPORT INFORMATION
  Report Type: 
  Country: None (occurrence: None)
  Receive Date: 20090402
  Receipt Date: 20090325
  Transmission Date: 20091009
  Serious: Yes (Death, Hospitalization)
  Sender: FDA-Public Use
  Company Number: IN-BAXTER-2009BH004836

PATIENT
  Age: 62 Year
  Sex: Male
  Weight: 55 kg

DRUGS (1)
  1. DIANEAL [Suspect]
     Indication: RENAL FAILURE CHRONIC
     Route: 033
     Dates: start: 20090228, end: 20090325

REACTIONS (5)
  - ANOREXIA [None]
  - ASTHENIA [None]
  - CARDIAC ARREST [None]
  - CHEST PAIN [None]
  - DYSPEPSIA [None]
